FAERS Safety Report 4474269-1 (Version None)
Quarter: 2004Q4

REPORT INFORMATION
  Report Type: 
  Country: None (occurrence: None)
  Receive Date: 20041013
  Receipt Date: 20041006
  Transmission Date: 20050328
  Serious: Yes (Hospitalization)
  Sender: FDA-Public Use
  Company Number: 2004UW20959

PATIENT
  Sex: Female

DRUGS (6)
  1. CRESTOR [Suspect]
     Dosage: 10 MG DAILY PO
     Route: 048
  2. CRESTOR [Suspect]
     Dosage: 10 MG PO
     Route: 048
  3. CHILDREN'S ASPIRIN [Concomitant]
  4. FOLIC ACID [Concomitant]
  5. VITAMIN C AND E [Concomitant]
  6. VITAMIN B COMPLEX CAP [Concomitant]

REACTIONS (2)
  - CELLULITIS [None]
  - MYALGIA [None]
